FAERS Safety Report 12581966 (Version 1)
Quarter: 2016Q3

REPORT INFORMATION
  Report Type: Spontaneous
  Country: FR (occurrence: FR)
  Receive Date: 20160722
  Receipt Date: 20160722
  Transmission Date: 20161109
  Serious: Yes (Hospitalization)
  Sender: FDA-Public Use
  Company Number: FR-ROCHE-1797541

PATIENT
  Age: 88 Year
  Sex: Female

DRUGS (11)
  1. LASILIX [Suspect]
     Active Substance: FUROSEMIDE
     Route: 065
     Dates: start: 20160706
  2. TEGRETOL [Concomitant]
     Active Substance: CARBAMAZEPINE
  3. FLAGYL [Suspect]
     Active Substance: METRONIDAZOLE\METRONIDAZOLE HYDROCHLORIDE
     Indication: BRONCHOPNEUMOPATHY
     Route: 048
     Dates: start: 20160630, end: 20160702
  4. CARDENSIEL [Concomitant]
     Active Substance: BISOPROLOL FUMARATE
  5. ROCEPHINE [Suspect]
     Active Substance: CEFTRIAXONE SODIUM
     Indication: URINARY TRACT INFECTION
     Route: 030
     Dates: start: 20160623, end: 20160630
  6. LASILIX [Suspect]
     Active Substance: FUROSEMIDE
     Indication: CARDIAC FAILURE
     Route: 048
     Dates: start: 20160623
  7. DOLIPRANE [Concomitant]
     Active Substance: ACETAMINOPHEN
  8. NORSET [Concomitant]
     Active Substance: MIRTAZAPINE
  9. LASILIX [Suspect]
     Active Substance: FUROSEMIDE
     Route: 058
     Dates: start: 20160630
  10. LASILIX [Suspect]
     Active Substance: FUROSEMIDE
     Route: 065
  11. COUMADINE [Concomitant]
     Active Substance: WARFARIN SODIUM

REACTIONS (2)
  - Hepatitis acute [Recovered/Resolved]
  - Drug-induced liver injury [Recovered/Resolved]

NARRATIVE: CASE EVENT DATE: 20160701
